FAERS Safety Report 15098640 (Version 1)
Quarter: 2018Q3

REPORT INFORMATION
  Report Type: Spontaneous
  Country: RO (occurrence: RO)
  Receive Date: 20180702
  Receipt Date: 20180702
  Transmission Date: 20181010
  Serious: Yes (Other)
  Sender: FDA-Public Use
  Company Number: RO-INCYTE CORPORATION-2018IN006309

PATIENT

DRUGS (1)
  1. JAKAVI [Suspect]
     Active Substance: RUXOLITINIB
     Indication: MYELOFIBROSIS
     Dosage: BID (2 X 5MG, 2 X 15 MG)
     Route: 048
     Dates: start: 201705

REACTIONS (4)
  - Squamous cell carcinoma [Unknown]
  - Thrombocytopenia [Recovering/Resolving]
  - Anaemia [Recovering/Resolving]
  - Second primary malignancy [Unknown]

NARRATIVE: CASE EVENT DATE: 201705
